FAERS Safety Report 8601587-5 (Version None)
Quarter: 2012Q3

REPORT INFORMATION
  Report Type: 
  Country: None (occurrence: None)
  Receive Date: 20120817
  Receipt Date: 20111208
  Transmission Date: 20120928
  Serious: Yes (Other)
  Sender: FDA-Public Use
  Company Number: US-BRISTOL-MYERS SQUIBB COMPANY-16280638

PATIENT
  Sex: Female

DRUGS (2)
  1. SPRYCEL [Suspect]
  2. ADVIL [Concomitant]

REACTIONS (4)
  - DYSPNOEA [None]
  - HEADACHE [None]
  - ANAEMIA [None]
  - INFLUENZA LIKE ILLNESS [None]
